FAERS Safety Report 18659862 (Version 1)
Quarter: 2020Q4

REPORT INFORMATION
  Report Type: Spontaneous
  Country: FR (occurrence: FR)
  Receive Date: 20201224
  Receipt Date: 20201224
  Transmission Date: 20210114
  Serious: Yes (Life-Threatening, Other)
  Sender: FDA-Public Use
  Company Number: FR-ACCORD-212150

PATIENT
  Age: 64 Year
  Sex: Female
  Weight: 60 kg

DRUGS (9)
  1. FUROSEMIDE. [Suspect]
     Active Substance: FUROSEMIDE
     Indication: PRODUCT USED FOR UNKNOWN INDICATION
     Route: 048
     Dates: start: 202010, end: 20201117
  2. KARDEGIC [Concomitant]
     Active Substance: ASPIRIN DL-LYSINE
  3. TERALITHE [Interacting]
     Active Substance: LITHIUM CARBONATE
     Indication: BIPOLAR DISORDER
     Dosage: STRENGTH- 250 MG, SCORED TABLET
     Route: 048
     Dates: end: 20201119
  4. LOXAPAC [Concomitant]
     Active Substance: LOXAPINE
  5. PERINDOPRIL [Interacting]
     Active Substance: PERINDOPRIL
     Indication: PRODUCT USED FOR UNKNOWN INDICATION
     Route: 048
     Dates: start: 202010, end: 20201119
  6. LEXOMIL [Concomitant]
     Active Substance: BROMAZEPAM
  7. LEPTICUR [Concomitant]
     Active Substance: TROPATEPINE HYDROCHLORIDE
  8. TAHOR [Concomitant]
     Active Substance: ATORVASTATIN CALCIUM
  9. BISOCE [Concomitant]
     Active Substance: BISOPROLOL

REACTIONS (7)
  - Renal failure [Recovered/Resolved]
  - Gait disturbance [Recovered/Resolved]
  - Altered state of consciousness [Recovered/Resolved]
  - Pyramidal tract syndrome [Recovered/Resolved]
  - Antipsychotic drug level increased [Recovered/Resolved]
  - Confusional state [Recovered/Resolved]
  - Drug interaction [Unknown]

NARRATIVE: CASE EVENT DATE: 20201114
